FAERS Safety Report 6291760-6 (Version None)
Quarter: 2009Q3

REPORT INFORMATION
  Report Type: 
  Country: None (occurrence: None)
  Receive Date: 20090730
  Receipt Date: 20090727
  Transmission Date: 20100115
  Serious: Yes (Other)
  Sender: FDA-Public Use
  Company Number: US-ASTRAZENECA-2009UW05884

PATIENT
  Age: 63 Year
  Sex: Female
  Weight: 90.7 kg

DRUGS (22)
  1. SEROQUEL [Suspect]
     Indication: SCHIZOPHRENIA
     Route: 048
     Dates: start: 20071201, end: 20090202
  2. SEROQUEL [Suspect]
     Indication: DEMENTIA
     Route: 048
     Dates: start: 20071201, end: 20090202
  3. SEROQUEL [Suspect]
     Indication: PSYCHOTIC DISORDER
     Route: 048
     Dates: start: 20071201, end: 20090202
  4. SEROQUEL [Suspect]
     Route: 048
     Dates: start: 20060501, end: 20071201
  5. SEROQUEL [Suspect]
     Route: 048
     Dates: start: 20060501, end: 20071201
  6. SEROQUEL [Suspect]
     Route: 048
     Dates: start: 20060501, end: 20071201
  7. SEROQUEL [Suspect]
     Route: 048
     Dates: start: 20090203
  8. SEROQUEL [Suspect]
     Route: 048
     Dates: start: 20090203
  9. SEROQUEL [Suspect]
     Route: 048
     Dates: start: 20090203
  10. SEROQUEL [Suspect]
     Route: 048
  11. SEROQUEL [Suspect]
     Route: 048
  12. SEROQUEL [Suspect]
     Route: 048
  13. ZOLOFT [Concomitant]
     Indication: AFFECTIVE DISORDER
  14. MELOXICAM [Concomitant]
     Dosage: 15
  15. LOVASTATIN [Concomitant]
     Dosage: 40
  16. OSTEOBIFLEX [Concomitant]
  17. FUROSEMIDE [Concomitant]
  18. ATIVAN [Concomitant]
     Indication: ANXIETY
  19. RISPERDAL [Concomitant]
     Dosage: 50 MG IM
     Dates: start: 20060501, end: 20081201
  20. LASIX [Concomitant]
  21. COLACE [Concomitant]
  22. CHANTIX [Concomitant]

REACTIONS (20)
  - AMNESIA [None]
  - ANXIETY [None]
  - BLOOD CHOLESTEROL INCREASED [None]
  - BLOOD GLUCOSE INCREASED [None]
  - BLOOD TRIGLYCERIDES INCREASED [None]
  - CONVULSION [None]
  - DIVERTICULITIS [None]
  - FEELING JITTERY [None]
  - HYPOGLYCAEMIA [None]
  - ILIAC ARTERY OCCLUSION [None]
  - IMPULSIVE BEHAVIOUR [None]
  - INSOMNIA [None]
  - LOSS OF CONSCIOUSNESS [None]
  - MOUTH INJURY [None]
  - MUSCULAR WEAKNESS [None]
  - NERVOUSNESS [None]
  - ORAL PAIN [None]
  - PSYCHOTIC DISORDER [None]
  - TARDIVE DYSKINESIA [None]
  - WEIGHT DECREASED [None]
